FAERS Safety Report 13738910 (Version 1)
Quarter: 2017Q3

REPORT INFORMATION
  Report Type: Spontaneous
  Country: US (occurrence: US)
  Receive Date: 20170710
  Receipt Date: 20170710
  Transmission Date: 20171127
  Serious: Yes (Other)
  Sender: FDA-Public Use
  Company Number: US-SAOL THERAPEUTICS-2017SAO00689

PATIENT
  Sex: Male

DRUGS (4)
  1. MORPHINE 24-HOUR TIME RELEASE [Concomitant]
     Route: 048
  2. BACLOFEN. [Suspect]
     Active Substance: BACLOFEN
     Indication: PAIN
     Dosage: 299.80 ?G, \DAY
     Route: 037
  3. MORPHINE [Suspect]
     Active Substance: MORPHINE
     Dosage: 23.984 MG, \DAY
     Route: 037
  4. OPIOIDS (UNSPECIFIED) [Concomitant]
     Dosage: UNK
     Dates: start: 1987

REACTIONS (7)
  - Pain [Not Recovered/Not Resolved]
  - Complication associated with device [Recovered/Resolved]
  - Device leakage [Recovered/Resolved]
  - Device failure [Recovered/Resolved]
  - Fall [Unknown]
  - Therapeutic product ineffective for unapproved indication [Not Recovered/Not Resolved]
  - Mobility decreased [Unknown]

NARRATIVE: CASE EVENT DATE: 201505
